FAERS Safety Report 13105515 (Version 4)
Quarter: 2017Q1

REPORT INFORMATION
  Report Type: Report from Study
  Country: MX (occurrence: MX)
  Receive Date: 20170111
  Receipt Date: 20170216
  Transmission Date: 20170428
  Serious: Yes (Other)
  Sender: FDA-Public Use
  Company Number: PHHY2016MX175367

PATIENT
  Age: 73 Year
  Sex: Female
  Weight: 72 kg

DRUGS (1)
  1. EXFORGE [Suspect]
     Active Substance: AMLODIPINE BESYLATE\VALSARTAN
     Indication: HYPERTENSION
     Dosage: 1 DF (AMLODIPINE 5 MG, VALSARTAN 160 MG), QD (6 YEARS AGO)
     Route: 048
     Dates: start: 2010

REACTIONS (19)
  - Dyspepsia [Not Recovered/Not Resolved]
  - Abdominal pain upper [Unknown]
  - Influenza [Not Recovered/Not Resolved]
  - Malaise [Not Recovered/Not Resolved]
  - Productive cough [Not Recovered/Not Resolved]
  - Concomitant disease aggravated [Unknown]
  - Abdominal discomfort [Recovering/Resolving]
  - Rhinorrhoea [Not Recovered/Not Resolved]
  - Burning sensation [Unknown]
  - Depressed mood [Not Recovered/Not Resolved]
  - Weight decreased [Unknown]
  - Hypothyroidism [Recovering/Resolving]
  - Asphyxia [Recovered/Resolved]
  - Oropharyngeal pain [Recovered/Resolved]
  - Overweight [Not Recovered/Not Resolved]
  - Laryngeal pain [Recovered/Resolved]
  - Peripheral swelling [Recovering/Resolving]
  - Gastritis [Unknown]
  - Toothache [Recovered/Resolved]

NARRATIVE: CASE EVENT DATE: 2013
